FAERS Safety Report 4732967-6 (Version None)
Quarter: 2005Q3

REPORT INFORMATION
  Report Type: 
  Country: None (occurrence: None)
  Receive Date: 20050802
  Receipt Date: 20050802
  Transmission Date: 20060218
  Serious: Yes (Hospitalization)
  Sender: FDA-Public Use
  Company Number: None

PATIENT
  Age: 42 Year
  Sex: Female
  Weight: 70.3075 kg

DRUGS (8)
  1. WARFARIN [Suspect]
     Indication: CATHETER RELATED COMPLICATION
     Dosage: 6 MG PO DAILY  CHRONIC
     Route: 048
  2. HERCEPTIN [Suspect]
     Dosage: Q 3 WK  X  PAST 4 MOS
  3. COUMADIN [Concomitant]
  4. EFFEXOR [Concomitant]
  5. ATIVAN [Concomitant]
  6. TYLENOL (CAPLET) [Concomitant]
  7. VICODIN [Concomitant]
  8. HERCEPTIN [Concomitant]

REACTIONS (10)
  - ANAEMIA [None]
  - COAGULOPATHY [None]
  - DUODENAL ULCER [None]
  - HAEMORRHAGE [None]
  - HYPOTENSION [None]
  - INTERNATIONAL NORMALISED RATIO INCREASED [None]
  - MELAENA [None]
  - SYNCOPE [None]
  - TACHYCARDIA [None]
  - WOUND SECRETION [None]
